FAERS Safety Report 13710308 (Version 1)
Quarter: 2017Q2

REPORT INFORMATION
  Report Type: Spontaneous
  Country: US (occurrence: US)
  Receive Date: 20170630
  Receipt Date: 20170630
  Transmission Date: 20170830
  Serious: Yes (Hospitalization)
  Sender: FDA-Public Use
  Company Number: None

PATIENT
  Age: 58 Year
  Sex: Female

DRUGS (11)
  1. ENBREL [Suspect]
     Active Substance: ETANERCEPT
     Indication: RHEUMATOID ARTHRITIS
     Dosage: DOSE - 50MG/ML PFS?FREQUENCY - 1 QW
     Route: 058
     Dates: start: 20170404
  2. METHOTREXATE. [Concomitant]
     Active Substance: METHOTREXATE
  3. DIOVAN [Concomitant]
     Active Substance: VALSARTAN
  4. ESTRADIOL. [Concomitant]
     Active Substance: ESTRADIOL
  5. IBUPROFEN. [Concomitant]
     Active Substance: IBUPROFEN
  6. QUINAPRIL. [Concomitant]
     Active Substance: QUINAPRIL
  7. LABETOLOL [Concomitant]
     Active Substance: LABETALOL HYDROCHLORIDE
  8. RESTASIS [Concomitant]
     Active Substance: CYCLOSPORINE
  9. APAP/CODEINE [Concomitant]
     Active Substance: ACETAMINOPHEN\CODEINE PHOSPHATE
  10. TRIAMTERENE/HCZ [Concomitant]
  11. FOLIC ACID. [Concomitant]
     Active Substance: FOLIC ACID

REACTIONS (1)
  - Blood calcium increased [None]

NARRATIVE: CASE EVENT DATE: 20170629
